FAERS Safety Report 18341317 (Version 2)
Quarter: 2020Q4

REPORT INFORMATION
  Report Type: Spontaneous
  Country: SI (occurrence: SI)
  Receive Date: 20201003
  Receipt Date: 20201008
  Transmission Date: 20210113
  Serious: Yes (Hospitalization)
  Sender: FDA-Public Use
  Company Number: SI-SERVIER-S20009651

PATIENT

DRUGS (4)
  1. ARA-C [Concomitant]
     Active Substance: CYTARABINE
     Indication: ACUTE LYMPHOCYTIC LEUKAEMIA
     Route: 065
  2. ERWINASE [Concomitant]
     Active Substance: ASPARAGINASE ERWINIA CHRYSANTHEMI
     Indication: ACUTE LYMPHOCYTIC LEUKAEMIA
     Route: 065
  3. ONCASPAR [Suspect]
     Active Substance: PEGASPARGASE
     Indication: ACUTE LYMPHOCYTIC LEUKAEMIA
     Dosage: 3375 IU
     Route: 042
  4. TN UNSPECIFIED [Concomitant]
     Indication: ACUTE LYMPHOCYTIC LEUKAEMIA
     Route: 065

REACTIONS (7)
  - Diabetes mellitus [Unknown]
  - Seizure [Unknown]
  - Pancreatitis acute [Recovered/Resolved]
  - Hypovolaemic shock [Unknown]
  - Cerebral venous sinus thrombosis [Unknown]
  - Pleural effusion [Unknown]
  - Cerebellar haematoma [Unknown]

NARRATIVE: CASE EVENT DATE: 2020
